FAERS Safety Report 16674314 (Version 1)
Quarter: 2019Q3

REPORT INFORMATION
  Report Type: Spontaneous
  Country: DE (occurrence: DE)
  Receive Date: 20190806
  Receipt Date: 20190806
  Transmission Date: 20191004
  Serious: Yes (Other)
  Sender: FDA-Public Use
  Company Number: DE-BRISTOL-MYERS SQUIBB COMPANY-BMS-2019-076437

PATIENT

DRUGS (1)
  1. ELIQUIS [Suspect]
     Active Substance: APIXABAN
     Indication: PULMONARY EMBOLISM
     Dosage: 5 MILLIGRAM, BID
     Route: 065
     Dates: start: 2017

REACTIONS (6)
  - Dizziness [Recovering/Resolving]
  - Weight increased [Unknown]
  - Atrial fibrillation [Unknown]
  - Arrhythmia [Unknown]
  - Bone pain [Unknown]
  - Myalgia [Unknown]
